FAERS Safety Report 25762294 (Version 3)
Quarter: 2025Q4

REPORT INFORMATION
  Report Type: Spontaneous
  Country: US (occurrence: US)
  Receive Date: 20250904
  Receipt Date: 20251020
  Transmission Date: 20260118
  Serious: Yes (Other)
  Sender: FOUNDATION CONSUMER HEALTHCARE, LLC
  Company Number: US-FOUNDATIONCONSUMERHC-2025-US-040833

PATIENT
  Age: 66 Year
  Sex: Male
  Weight: 121.56 kg

DRUGS (3)
  1. ST. JOSEPH LOW DOSE ASPIRIN [Suspect]
     Active Substance: ASPIRIN
     Indication: Chest pain
     Dosage: 1 ASPIRIN, AS NEEDED; 3 TIMES A WEEK X 20 YEARS
     Route: 048
     Dates: start: 202307, end: 20250729
  2. LANTUS [Concomitant]
     Active Substance: INSULIN GLARGINE
     Dosage: EVERY NIGHT
  3. METFORMIN [Concomitant]
     Active Substance: METFORMIN HYDROCHLORIDE

REACTIONS (9)
  - Dyspnoea [Unknown]
  - Cardiac disorder [Unknown]
  - Abdominal pain [Recovered/Resolved]
  - Chest pain [Recovered/Resolved]
  - Anaemia [Unknown]
  - Dyspnoea [Recovered/Resolved]
  - Gastric haemorrhage [Unknown]
  - Gastric varices [Unknown]
  - Large intestine polyp [Recovered/Resolved]

NARRATIVE: CASE EVENT DATE: 20250201
